FAERS Safety Report 9123916 (Version 1)
Quarter: 2013Q1

REPORT INFORMATION
  Report Type: Spontaneous
  Country: US (occurrence: US)
  Receive Date: 20130116
  Receipt Date: 20130116
  Transmission Date: 20140127
  Serious: Yes (Other)
  Sender: FDA-Public Use
  Company Number: US-009507513-1301XAA004074

PATIENT
  Age: 18 Year
  Sex: Female

DRUGS (3)
  1. SINGULAIR [Suspect]
     Route: 048
  2. DESLORATADINE [Suspect]
     Route: 048
  3. FLUTICASONE PROPIONATE [Suspect]
     Route: 065

REACTIONS (1)
  - Photosensitivity reaction [Unknown]
